FAERS Safety Report 9524679 (Version 1)
Quarter: 2013Q1

REPORT INFORMATION
  Report Type: Spontaneous
  Country: US (occurrence: None)
  Receive Date: 20130313
  Receipt Date: 20130313
  Transmission Date: 20140127
  Serious: No
  Sender: FDA-Public Use
  Company Number: 1000040170

PATIENT
  Age: 66 Year
  Sex: Male

DRUGS (7)
  1. SAVELLA [Suspect]
     Indication: ABDOMINAL PAIN
     Route: 048
     Dates: start: 201210, end: 201210
  2. BACLOFEN [Concomitant]
  3. CYBALTA (DULOXETINE HYDROCHLORIDE) [Concomitant]
  4. DIPHENHYDRAMINE [Concomitant]
  5. CLONAZEPAM [Concomitant]
  6. GABAPENTIN [Concomitant]
  7. TAMSULOSIN [Concomitant]

REACTIONS (2)
  - Off label use [None]
  - Chromaturia [None]
